FAERS Safety Report 10900698 (Version 2)
Quarter: 2015Q2

REPORT INFORMATION
  Report Type: Spontaneous
  Country: JP (occurrence: None)
  Receive Date: 20150303
  Receipt Date: 20150630
  Transmission Date: 20150821
  Serious: Yes (Other)
  Sender: FDA-Public Use
  Company Number: ABR_02060_2015

PATIENT
  Age: 63 Year
  Sex: Male

DRUGS (1)
  1. GLIADEL [Suspect]
     Active Substance: CARMUSTINE
     Indication: MALIGNANT GLIOMA
     Dosage: DF INTRACEREBRAL
     Dates: start: 20130904

REACTIONS (2)
  - Brain oedema [None]
  - Neurological decompensation [None]

NARRATIVE: CASE EVENT DATE: 20131017
